FAERS Safety Report 15278211 (Version 5)
Quarter: 2018Q4

REPORT INFORMATION
  Report Type: Spontaneous
  Country: NO (occurrence: NO)
  Receive Date: 20180814
  Receipt Date: 20181029
  Transmission Date: 20190204
  Serious: Yes (Disabling, Other)
  Sender: FDA-Public Use
  Company Number: NO-PFIZER INC-2018324116

PATIENT
  Age: 42 Year
  Sex: Male

DRUGS (8)
  1. SAROTEX [Concomitant]
     Active Substance: AMITRIPTYLINE HYDROCHLORIDE
     Dosage: UNK
     Dates: start: 2009, end: 2012
  2. LAMICTAL [Concomitant]
     Active Substance: LAMOTRIGINE
     Indication: PAIN
     Dosage: UNK
  3. ORUDIS [Suspect]
     Active Substance: KETOPROFEN
     Indication: PAIN
     Dosage: 200 MG, ONCE DAILY
     Dates: start: 20090514, end: 20110331
  4. BACLOFEN. [Concomitant]
     Active Substance: BACLOFEN
     Indication: MUSCLE SPASMS
     Dosage: 25 MG, 3X/DAY
  5. LYRICA [Suspect]
     Active Substance: PREGABALIN
     Indication: PAIN
     Dosage: 75 MG, THREE TIMES A DAY
     Dates: start: 2010, end: 2015
  6. ORUDIS [Suspect]
     Active Substance: KETOPROFEN
     Dosage: 200 MG, TWICE DAILY
     Dates: start: 20110401, end: 201309
  7. IBUX [Concomitant]
     Active Substance: IBUPROFEN
     Dosage: DESCRIBED AS: 750 MG 1+1+1+1
     Dates: start: 2008, end: 2014
  8. PARACET [Concomitant]
     Active Substance: ACETAMINOPHEN
     Dosage: DESCRIBED AS: 1000 MG 1+1+1+1
     Dates: start: 2008, end: 2014

REACTIONS (7)
  - Skin abrasion [Not Recovered/Not Resolved]
  - Gastric disorder [Recovered/Resolved]
  - Peripheral coldness [Not Recovered/Not Resolved]
  - Supraventricular tachycardia [Recovered/Resolved]
  - Skin atrophy [Not Recovered/Not Resolved]
  - Haemorrhagic diathesis [Not Recovered/Not Resolved]
  - Rectal haemorrhage [Unknown]

NARRATIVE: CASE EVENT DATE: 201403
